APPROVED DRUG PRODUCT: METHYLDOPA AND HYDROCHLOROTHIAZIDE
Active Ingredient: HYDROCHLOROTHIAZIDE; METHYLDOPA
Strength: 30MG;500MG
Dosage Form/Route: TABLET;ORAL
Application: A071899 | Product #001
Applicant: PARKE DAVIS DIV WARNER LAMBERT CO
Approved: Nov 23, 1987 | RLD: No | RS: No | Type: DISCN